FAERS Safety Report 9826696 (Version 1)
Quarter: 2013Q4

REPORT INFORMATION
  Report Type: Spontaneous
  Country: GB (occurrence: None)
  Receive Date: 20131112
  Receipt Date: 20131112
  Transmission Date: 20140711
  Serious: Yes (Hospitalization)
  Sender: FDA-Public Use
  Company Number: E2B_00001203

PATIENT
  Age: 57 Year
  Sex: Male
  Weight: 71.4 kg

DRUGS (3)
  1. LISINOPRIL [Suspect]
     Indication: HYPERTENSION
     Dosage: UNKNOWN (20 MG, UNKNOWN), UNKNOWN
  2. DOXAZOSIN (UNKNOWN) [Suspect]
     Indication: HYPERTENSION
     Dosage: UNKNOWN (8 MG, UNKNOWN), UNKNOWN
     Dates: start: 201207
  3. AMLODIPINE (UNKNOWN) [Suspect]
     Indication: HYPERTENSION
     Dosage: UNKNOWN (10 MG, UNKNOWN), UNKNOWN

REACTIONS (7)
  - Heart rate decreased [None]
  - Rash [None]
  - Vomiting [None]
  - Diarrhoea [None]
  - Paraesthesia [None]
  - Heart rate irregular [None]
  - Decreased appetite [None]
